FAERS Safety Report 8385810-0 (Version None)
Quarter: 2012Q2

REPORT INFORMATION
  Report Type: 
  Country: None (occurrence: None)
  Receive Date: 20120525
  Receipt Date: 20120518
  Transmission Date: 20120825
  Serious: Yes (Hospitalization, Other)
  Sender: FDA-Public Use
  Company Number: US-BAYER-2010-007079

PATIENT
  Age: 16 Year
  Sex: Female
  Weight: 75.737 kg

DRUGS (8)
  1. YAZ [Suspect]
     Indication: CONTRACEPTION
     Dosage: UNK
     Route: 048
     Dates: start: 20080501, end: 20081201
  2. WELLBUTRIN [Concomitant]
     Indication: DEPRESSION
     Dosage: 200 MG, DAILY
     Route: 048
  3. TYLENOL [Concomitant]
     Indication: PAIN
     Dosage: 500MG EVERY 6 HOURS AS NEEDED
     Route: 048
  4. FERROUS SULFATE TAB [Concomitant]
     Dosage: 325 MG, DAILY
     Route: 048
  5. FLEXERIL [Concomitant]
     Indication: BACK PAIN
  6. SEROQUEL [Concomitant]
     Indication: DEPRESSION
     Dosage: 50 MG, DAILY
     Route: 048
  7. MOTRIN [Concomitant]
     Route: 048
  8. LORTAB [Concomitant]
     Indication: BACK PAIN

REACTIONS (5)
  - ANXIETY [None]
  - DEPRESSION [None]
  - FEAR [None]
  - PAIN [None]
  - DEEP VEIN THROMBOSIS [None]
